FAERS Safety Report 8421455-1 (Version None)
Quarter: 2012Q2

REPORT INFORMATION
  Report Type: 
  Country: None (occurrence: None)
  Receive Date: 20120601
  Receipt Date: 20120517
  Transmission Date: 20120825
  Serious: Yes (Death)
  Sender: FDA-Public Use
  Company Number: UTC-018973

PATIENT
  Age: 62 Year
  Sex: Male

DRUGS (2)
  1. ADCIRCA [Concomitant]
  2. TYVASO [Suspect]
     Indication: PULMONARY ARTERIAL HYPERTENSION
     Dosage: 216 MCG (54 MCG, 4 IN 1 D), INHALATION
     Route: 055
     Dates: start: 20110505

REACTIONS (1)
  - DEATH [None]
